FAERS Safety Report 20367381 (Version 1)
Quarter: 2022Q1

REPORT INFORMATION
  Report Type: Spontaneous
  Country: CA (occurrence: CA)
  Receive Date: 20220124
  Receipt Date: 20220124
  Transmission Date: 20220423
  Serious: Yes (Other)
  Sender: FDA-Public Use
  Company Number: CA-JNJFOC-20220135123

PATIENT
  Age: 35 Year
  Sex: Female
  Weight: 85 kg

DRUGS (7)
  1. REMICADE [Suspect]
     Active Substance: INFLIXIMAB
     Indication: Colitis ulcerative
     Route: 042
  2. ACETAMINOPHEN [Concomitant]
     Active Substance: ACETAMINOPHEN
     Indication: Premedication
  3. DIPHENHYDRAMINE [Concomitant]
     Active Substance: DIPHENHYDRAMINE
     Indication: Premedication
  4. HYDROCORTISONE [Concomitant]
     Active Substance: HYDROCORTISONE
     Indication: Premedication
  5. IMODIUM [Concomitant]
     Active Substance: LOPERAMIDE HYDROCHLORIDE
  6. MESALAMINE [Concomitant]
     Active Substance: MESALAMINE
  7. PREDNISONE [Concomitant]
     Active Substance: PREDNISONE

REACTIONS (6)
  - Hernia [Unknown]
  - Malaise [Unknown]
  - Drug level below therapeutic [Unknown]
  - Pyrexia [Unknown]
  - Condition aggravated [Unknown]
  - Off label use [Unknown]
